FAERS Safety Report 15647407 (Version 1)
Quarter: 2020Q3

REPORT INFORMATION
  Report Type: Report from Study
  Country: CN (occurrence: CN)
  Receive Date: 20181122
  Receipt Date: 20181122
  Transmission Date: 20201105
  Serious: Yes (Other)
  Sender: FDA-Public Use
  Company Number: CN-ROCHE-2218635

PATIENT

DRUGS (2)
  1. FINGOLIMOD. [Suspect]
     Active Substance: FINGOLIMOD
     Indication: ISCHAEMIC STROKE
     Route: 048
  2. ALTEPLASE. [Suspect]
     Active Substance: ALTEPLASE
     Indication: ISCHAEMIC STROKE
     Route: 040

REACTIONS (5)
  - Brain herniation [Unknown]
  - Atrial flutter [Unknown]
  - Brain oedema [Unknown]
  - Pneumonia [Unknown]
  - Thrombocytopenia [Unknown]
